FAERS Safety Report 12324112 (Version 1)
Quarter: 2016Q2

REPORT INFORMATION
  Report Type: Spontaneous
  Country: TH (occurrence: TH)
  Receive Date: 20160502
  Receipt Date: 20160502
  Transmission Date: 20160815
  Serious: Yes (Other)
  Sender: FDA-Public Use
  Company Number: TH-ECLAT PHARMACEUTICALS-2016ECL00007

PATIENT
  Sex: Female

DRUGS (4)
  1. PHENYLEPHRINE [Suspect]
     Active Substance: PHENYLEPHRINE\PHENYLEPHRINE HYDROCHLORIDE
     Indication: PROCEDURAL HYPOTENSION
     Dosage: 100 ?G, WITH ADDITIONAL PHENYLEPHRINE DOSES GIVEN EVERY MINUTE IF/WHEN HYPOTENSION PERSISTED
     Route: 042
  2. 0.9% NACL SOLUTION [Concomitant]
     Dosage: 10 ML/KG IV WAS GIVEN OVER A 15- TO 20-MINUTE PERIOD BEFORE PERFORMING SPINAL ANESTHESIA
     Route: 042
  3. 0.5% HYPERBARIC BUPIVACAINE [Concomitant]
     Dosage: 2.2 ML, ONCE
     Route: 037
  4. PRESERVATIVE-FREE MORPHINE [Concomitant]
     Dosage: 0.2 MG, ONCE
     Route: 037

REACTIONS (3)
  - Nodal rhythm [Recovered/Resolved]
  - Atrioventricular block second degree [Recovered/Resolved]
  - Sinus bradycardia [Recovered/Resolved]
